FAERS Safety Report 10234711 (Version 1)
Quarter: 2014Q2

REPORT INFORMATION
  Report Type: Spontaneous
  Country: US (occurrence: None)
  Receive Date: 20140506
  Receipt Date: 20140506
  Transmission Date: 20141212
  Serious: Yes (Other)
  Sender: FDA-Public Use
  Company Number: 1269599

PATIENT
  Age: 79 Year
  Sex: Male

DRUGS (3)
  1. AVASTATIN (BEVACIZUMAB) [Suspect]
     Indication: NON-SMALL CELL LUNG CANCER
  2. TAXOL (PACLITAXEL) [Concomitant]
  3. CARBOPLATIN (CARBOPLATIN) (INFUSION) [Concomitant]

REACTIONS (2)
  - Anaphylactic reaction [None]
  - Swollen tongue [None]
